FAERS Safety Report 6751999-X (Version None)
Quarter: 2010Q2

REPORT INFORMATION
  Report Type: 
  Country: None (occurrence: None)
  Receive Date: 20100526
  Receipt Date: 20100325
  Transmission Date: 20101027
  Serious: No
  Sender: FDA-Public Use
  Company Number: 306221

PATIENT
  Age: 57 Year

DRUGS (1)
  1. VICTOZA [Suspect]
     Indication: TYPE 2 DIABETES MELLITUS
     Dosage: 1.6 MG,QD,SUBCUTANEOUS
     Route: 058

REACTIONS (1)
  - ABDOMINAL DISCOMFORT [None]
